FAERS Safety Report 20775551 (Version 1)
Quarter: 2022Q2

REPORT INFORMATION
  Report Type: Report from Study
  Country: BR (occurrence: BR)
  Receive Date: 20220502
  Receipt Date: 20220502
  Transmission Date: 20220721
  Serious: Yes (Death, Other)
  Sender: FDA-Public Use
  Company Number: BR-NOVARTISPH-NVSC2022BR100623

PATIENT
  Sex: Female

DRUGS (1)
  1. INDACATEROL MALEATE [Suspect]
     Active Substance: INDACATEROL MALEATE
     Indication: Product used for unknown indication
     Dosage: UNK
     Route: 055

REACTIONS (4)
  - Drug hypersensitivity [Fatal]
  - Malignant peritoneal neoplasm [Unknown]
  - Illness [Unknown]
  - Cognitive disorder [Unknown]
